FAERS Safety Report 14728975 (Version 4)
Quarter: 2018Q2

REPORT INFORMATION
  Report Type: Spontaneous
  Country: SK (occurrence: SK)
  Receive Date: 20180406
  Receipt Date: 20180605
  Transmission Date: 20180711
  Serious: Yes (Other)
  Sender: FDA-Public Use
  Company Number: SK-SA-2018SA100066

PATIENT
  Sex: Female

DRUGS (3)
  1. LANTUS SOLOSTAR [Suspect]
     Active Substance: INSULIN GLARGINE
     Dosage: UNK UNK,UNK
     Route: 058
  2. LANTUS [Suspect]
     Active Substance: INSULIN GLARGINE
     Dosage: UNK UNK,UNK
     Route: 058
  3. NOVORAPID [Suspect]
     Active Substance: INSULIN ASPART
     Indication: TYPE 1 DIABETES MELLITUS
     Dosage: UNK UNK,UNK
     Route: 058

REACTIONS (4)
  - Diabetic ketoacidosis [Unknown]
  - Drug ineffective [Unknown]
  - Hypoglycaemia [Unknown]
  - Hyperglycaemia [Unknown]
